FAERS Safety Report 8052374-0 (Version None)
Quarter: 2012Q1

REPORT INFORMATION
  Report Type: 
  Country: None (occurrence: None)
  Receive Date: 20120118
  Receipt Date: 20120106
  Transmission Date: 20120608
  Serious: Yes (Congenital Anomaly)
  Sender: FDA-Public Use
  Company Number: FR-BRISTOL-MYERS SQUIBB COMPANY-16341133

PATIENT
  Sex: Female
  Weight: 3 kg

DRUGS (4)
  1. ABILIFY [Suspect]
     Route: 064
     Dates: start: 20110107, end: 20110921
  2. CLOZAPINE [Suspect]
     Route: 064
     Dates: start: 20110107, end: 20110921
  3. CLONAZEPAM [Suspect]
     Route: 064
     Dates: start: 20110107, end: 20110501
  4. DEPAKOTE [Suspect]
     Route: 064
     Dates: start: 20110107, end: 20110127

REACTIONS (1)
  - CONGENITAL HYPOTHYROIDISM [None]
